FAERS Safety Report 7603327-5 (Version None)
Quarter: 2011Q3

REPORT INFORMATION
  Report Type: 
  Country: None (occurrence: None)
  Receive Date: 20110712
  Receipt Date: 20110629
  Transmission Date: 20111222
  Serious: Yes (Other)
  Sender: FDA-Public Use
  Company Number: PHHY2011DE58185

PATIENT
  Age: 70 Year
  Sex: Female

DRUGS (5)
  1. AREDIA [Suspect]
     Route: 042
     Dates: start: 19961101, end: 20020901
  2. AREDIA [Suspect]
     Route: 042
     Dates: start: 20041001, end: 20050101
  3. AREDIA [Suspect]
     Route: 042
     Dates: start: 20070424, end: 20100601
  4. ZOMETA [Suspect]
     Dosage: UNK
     Route: 042
     Dates: start: 20020901, end: 20041001
  5. CHEMOTHERAPEUTICS NOS [Concomitant]

REACTIONS (3)
  - JAW DISORDER [None]
  - OSTEONECROSIS OF JAW [None]
  - TOOTH EXTRACTION [None]
